FAERS Safety Report 22647883 (Version 1)
Quarter: 2023Q2

REPORT INFORMATION
  Report Type: Spontaneous
  Country: US (occurrence: US)
  Receive Date: 20230628
  Receipt Date: 20230628
  Transmission Date: 20230722
  Serious: No
  Sender: FDA-Public Use
  Company Number: US-ABBVIE-5306646

PATIENT
  Sex: Female

DRUGS (1)
  1. IMBRUVICA [Suspect]
     Active Substance: IBRUTINIB
     Indication: Product used for unknown indication
     Dosage: FORM STRENGTH 420 MILLIGRAM
     Route: 048
     Dates: start: 20230530

REACTIONS (3)
  - Feeling abnormal [Unknown]
  - White blood cell count decreased [Unknown]
  - Nausea [Unknown]

NARRATIVE: CASE EVENT DATE: 20230101
